FAERS Safety Report 7338254-4 (Version None)
Quarter: 2011Q1

REPORT INFORMATION
  Report Type: 
  Country: None (occurrence: None)
  Receive Date: 20110308
  Receipt Date: 20110224
  Transmission Date: 20110831
  Serious: Yes (Hospitalization)
  Sender: FDA-Public Use
  Company Number: ES-ELI_LILLY_AND_COMPANY-ES201101005180

PATIENT
  Sex: Male
  Weight: 62 kg

DRUGS (15)
  1. TERBASMIN [Concomitant]
     Indication: PROPHYLAXIS
  2. PEMETREXED [Suspect]
     Dosage: 500 MG/M2, ON DAY 1 EVERY 21 DAYS
     Route: 042
     Dates: start: 20100308
  3. VITAMIN B-12 [Concomitant]
     Indication: PROPHYLAXIS
     Dates: start: 20100122
  4. ALPRAZOLAM [Concomitant]
     Indication: DEPRESSION
     Dates: start: 20100727
  5. CISPLATIN [Suspect]
     Indication: NON-SMALL CELL LUNG CANCER
     Dosage: 75 MG/M2, ON DAY 1 EVERY 21 DAYS
     Route: 042
     Dates: start: 20100308
  6. ENANTYUM [Concomitant]
     Indication: ARTHRALGIA
     Dates: start: 20101225
  7. DEXAMETHASONE [Concomitant]
     Indication: PROPHYLAXIS
     Dosage: UNK, UNK
     Dates: start: 20100228
  8. IDALPREM [Concomitant]
     Indication: INSOMNIA
     Dates: start: 20100324
  9. OMEPRAZOLE [Concomitant]
     Indication: PROPHYLAXIS
     Dates: start: 20100503
  10. ATROVENT [Concomitant]
     Indication: PROPHYLAXIS
     Dates: start: 20100324
  11. PEMETREXED [Suspect]
     Indication: NON-SMALL CELL LUNG CANCER
     Dosage: UNK, UNK
     Route: 042
     Dates: start: 20100524, end: 20101223
  12. PARACETAMOL [Concomitant]
     Indication: ARTHRALGIA
     Dates: start: 20100215
  13. FLUTOX [Concomitant]
     Indication: COUGH
     Dates: start: 20100215
  14. FOLIC ACID [Concomitant]
     Indication: PROPHYLAXIS
     Dates: start: 20100222
  15. SPIRIVA [Concomitant]
     Indication: PROPHYLAXIS
     Dates: start: 20100215

REACTIONS (2)
  - ARTHRALGIA [None]
  - MYALGIA [None]
